FAERS Safety Report 14409626 (Version 6)
Quarter: 2019Q1

REPORT INFORMATION
  Report Type: Spontaneous
  Country: US (occurrence: US)
  Receive Date: 20180119
  Receipt Date: 20190326
  Transmission Date: 20190417
  Serious: No
  Sender: FDA-Public Use
  Company Number: US-BRISTOL-MYERS SQUIBB COMPANY-BMS-2018-003914

PATIENT
  Sex: Female
  Weight: 68.03 kg

DRUGS (2)
  1. ORENCIA [Suspect]
     Active Substance: ABATACEPT
     Indication: RHEUMATOID ARTHRITIS
     Dosage: 125 MILLIGRAM, QWK
     Route: 058
     Dates: start: 201704
  2. ORENCIA [Suspect]
     Active Substance: ABATACEPT
     Indication: PRODUCT USED FOR UNKNOWN INDICATION
     Dosage: 125 MILLIGRAM, QWK
     Route: 058
     Dates: start: 201806

REACTIONS (8)
  - Pain [Unknown]
  - Rhinitis [Unknown]
  - Arthritis [Unknown]
  - Respiratory tract infection viral [Unknown]
  - Nasopharyngitis [Unknown]
  - Ear discomfort [Unknown]
  - Sinusitis [Unknown]
  - Alopecia [Unknown]
